FAERS Safety Report 4753454-5 (Version None)
Quarter: 2005Q3

REPORT INFORMATION
  Report Type: 
  Country: None (occurrence: None)
  Receive Date: 20050824
  Receipt Date: 20050812
  Transmission Date: 20060218
  Serious: Yes (Death)
  Sender: FDA-Public Use
  Company Number: 8011089

PATIENT
  Age: 80 Year
  Sex: Male

DRUGS (4)
  1. THEOPHYLLINE [Suspect]
     Dosage: 100 MG 3/D PO
     Route: 048
  2. THEOPHYLLINE [Suspect]
     Dosage: 200 MG 2/D PO
     Route: 048
  3. CIMETIDINE [Suspect]
     Dosage: 300 MG 1/D PO
     Route: 048
  4. CIMETIDINE [Suspect]
     Dosage: 300 MG 4/D PO
     Route: 048

REACTIONS (24)
  - ANTASTHMATIC DRUG LEVEL ABOVE THERAPEUTIC [None]
  - ATRIAL FIBRILLATION [None]
  - BLOOD GLUCOSE INCREASED [None]
  - BLOOD PH DECREASED [None]
  - BLOOD POTASSIUM DECREASED [None]
  - BLOOD UREA INCREASED [None]
  - BRADYCARDIA [None]
  - CONFUSIONAL STATE [None]
  - CONVULSION [None]
  - DRUG INTERACTION [None]
  - HAEMOGLOBIN DECREASED [None]
  - HEADACHE [None]
  - HEART RATE INCREASED [None]
  - HEART RATE IRREGULAR [None]
  - HYPOTENSION [None]
  - LETHARGY [None]
  - LUNG DISORDER [None]
  - LYMPHOCYTE PERCENTAGE INCREASED [None]
  - NAUSEA [None]
  - NEUTROPHIL PERCENTAGE INCREASED [None]
  - PCO2 DECREASED [None]
  - VENTRICULAR TACHYCARDIA [None]
  - VOMITING [None]
  - WHEEZING [None]
